FAERS Safety Report 6377173-7 (Version None)
Quarter: 2009Q3

REPORT INFORMATION
  Report Type: 
  Country: None (occurrence: None)
  Receive Date: 20090924
  Receipt Date: 20090924
  Transmission Date: 20100115
  Serious: Yes (Death)
  Sender: FDA-Public Use
  Company Number: None

PATIENT
  Sex: Female

DRUGS (19)
  1. REVLIMID [Suspect]
     Indication: MULTIPLE MYELOMA
     Dosage: 15MG 3 TIMES A WEEK ORALLY
     Route: 048
     Dates: start: 20090107, end: 20090318
  2. PROCRIT [Concomitant]
  3. AMLODIPINE [Concomitant]
  4. ALLOPURINOL [Concomitant]
  5. ASPIRIN [Concomitant]
  6. IPRATROPIUM [Concomitant]
  7. ALBUTEROL [Concomitant]
  8. SIMVASTATIN [Concomitant]
  9. PROAIR HFA [Concomitant]
  10. VICODIN [Concomitant]
  11. LORAZEPAM [Concomitant]
  12. M.V.I. [Concomitant]
  13. METOPROLOL [Concomitant]
  14. HYDRALAZINE [Concomitant]
  15. NEPHRO-VITE [Concomitant]
  16. CALCIUM ACETATE [Concomitant]
  17. ONDANSETRON [Concomitant]
  18. DSS [Concomitant]
  19. LACTULOSE [Concomitant]

REACTIONS (7)
  - ABDOMINAL PAIN [None]
  - CATHETER RELATED INFECTION [None]
  - CEREBROVASCULAR ACCIDENT [None]
  - DECUBITUS ULCER [None]
  - MENTAL STATUS CHANGES [None]
  - SEPSIS [None]
  - WHITE BLOOD CELL COUNT DECREASED [None]
